FAERS Safety Report 6297759-8 (Version None)
Quarter: 2009Q3

REPORT INFORMATION
  Report Type: 
  Country: None (occurrence: None)
  Receive Date: 20090804
  Receipt Date: 20090804
  Transmission Date: 20100115
  Serious: Yes (Other)
  Sender: FDA-Public Use
  Company Number: None

PATIENT
  Age: 33 Year
  Sex: Female
  Weight: 63.5036 kg

DRUGS (1)
  1. LAMICTAL [Suspect]
     Indication: PETIT MAL EPILEPSY
     Dosage: 200-250 MG TWICE DAILY PO
     Route: 048

REACTIONS (4)
  - ABASIA [None]
  - LOSS OF CONTROL OF LEGS [None]
  - PRODUCT QUALITY ISSUE [None]
  - VISION BLURRED [None]
